FAERS Safety Report 25688262 (Version 1)
Quarter: 2025Q3

REPORT INFORMATION
  Report Type: Spontaneous
  Country: EU (occurrence: EU)
  Receive Date: 20250818
  Receipt Date: 20250818
  Transmission Date: 20251021
  Serious: Yes (Other)
  Sender: TEVA
  Company Number: None

PATIENT
  Age: 83 Year
  Sex: Male

DRUGS (1)
  1. CAPECITABINE [Suspect]
     Active Substance: CAPECITABINE
     Indication: Rectal neoplasm
     Dosage: 650MG/12H FOR 14 DAYS
     Route: 048
     Dates: start: 20250327

REACTIONS (1)
  - Diarrhoea [Recovering/Resolving]
